FAERS Safety Report 5465941-5 (Version None)
Quarter: 2007Q3

REPORT INFORMATION
  Report Type: 
  Country: None (occurrence: None)
  Receive Date: 20070924
  Receipt Date: 20070914
  Transmission Date: 20080115
  Serious: Yes (Other)
  Sender: FDA-Public Use
  Company Number: GB-SHR-GB-2007-034956

PATIENT
  Age: 20 Year
  Sex: Female

DRUGS (3)
  1. CAMPATH [Suspect]
     Dosage: 50 MG, UNK
  2. CYCLOPHOSPHAMIDE [Suspect]
     Dosage: 120 MG/KG, UNK
  3. CYCLOSPORINE [Concomitant]

REACTIONS (3)
  - ANAEMIA HAEMOLYTIC AUTOIMMUNE [None]
  - CHRONIC GRAFT VERSUS HOST DISEASE [None]
  - HYPERTHYROIDISM [None]
